FAERS Safety Report 20164330 (Version 4)
Quarter: 2022Q4

REPORT INFORMATION
  Report Type: Spontaneous
  Country: US (occurrence: US)
  Receive Date: 20211209
  Receipt Date: 20221207
  Transmission Date: 20230112
  Serious: Yes (Hospitalization, Other)
  Sender: FDA-Public Use
  Company Number: US-SA-SAC20211206000259

PATIENT
  Age: 36 Year
  Sex: Male
  Weight: 175.06 kg

DRUGS (4)
  1. FABRAZYME [Suspect]
     Active Substance: AGALSIDASE BETA
     Indication: Fabry^s disease
     Dosage: 170 MG, QOW
     Route: 041
     Dates: start: 20110412
  2. FABRAZYME [Suspect]
     Active Substance: AGALSIDASE BETA
     Dosage: 170 MG, QOW
     Route: 041
     Dates: start: 202101
  3. FABRAZYME [Suspect]
     Active Substance: AGALSIDASE BETA
     Dosage: 140 MG, QOW
     Route: 042
     Dates: start: 20210201
  4. FABRAZYME [Suspect]
     Active Substance: AGALSIDASE BETA
     Dosage: 30 MG, QOW
     Route: 042
     Dates: start: 20210201

REACTIONS (7)
  - Cellulitis [Unknown]
  - Pyrexia [Unknown]
  - Illness [Unknown]
  - Lymphoedema [Unknown]
  - Peripheral swelling [Unknown]
  - Pain in extremity [Unknown]
  - Weight decreased [Unknown]

NARRATIVE: CASE EVENT DATE: 20220901
